FAERS Safety Report 18412575 (Version 3)
Quarter: 2020Q4

REPORT INFORMATION
  Report Type: Report from Study
  Country: MX (occurrence: MX)
  Receive Date: 20201021
  Receipt Date: 20201201
  Transmission Date: 20210114
  Serious: Yes (Death, Life-Threatening, Hospitalization, Other)
  Sender: FDA-Public Use
  Company Number: NVSC2020MX281684

PATIENT
  Age: 57 Year
  Sex: Male
  Weight: 100 kg

DRUGS (1)
  1. TASIGNA [Suspect]
     Active Substance: NILOTINIB
     Indication: CHRONIC MYELOID LEUKAEMIA
     Dosage: 800 MG, QD (5 YEARS AGO)
     Route: 048

REACTIONS (6)
  - Cardiac infection [Not Recovered/Not Resolved]
  - COVID-19 [Unknown]
  - Cardiac arrest [Fatal]
  - Dyspnoea [Not Recovered/Not Resolved]
  - Inappropriate schedule of product administration [Unknown]
  - Hepatic infection bacterial [Not Recovered/Not Resolved]

NARRATIVE: CASE EVENT DATE: 20201002
